FAERS Safety Report 7362241-3 (Version None)
Quarter: 2011Q1

REPORT INFORMATION
  Report Type: 
  Country: None (occurrence: None)
  Receive Date: 20110318
  Receipt Date: 20110307
  Transmission Date: 20110831
  Serious: Yes (Other)
  Sender: FDA-Public Use
  Company Number: PHHY2011US19033

PATIENT
  Sex: Male
  Weight: 70.113 kg

DRUGS (11)
  1. ALLOPURINOL [Concomitant]
     Dosage: 1 DF, DAILY
     Route: 048
  2. EXJADE [Suspect]
     Indication: HAEMOSIDEROSIS
     Dosage: 1000 MG, QD
     Route: 048
     Dates: start: 20101201
  3. LOTREL [Concomitant]
     Dosage: 5-40MG DAILY
     Route: 048
  4. TOPROL-XL [Concomitant]
     Dosage: 1 DF, DAILY
     Route: 048
  5. PREDNISONE [Concomitant]
     Dosage: 1 DF, DAILY
     Route: 048
  6. EMEND [Concomitant]
     Dosage: 80 MG, DAILY
     Route: 048
  7. SIMVASTATIN [Concomitant]
     Dosage: 1 DF, DAILY
     Route: 048
  8. BACTRIM DS [Concomitant]
     Dosage: 1 DF, BID
     Route: 048
  9. COMPAZINE [Concomitant]
     Indication: NAUSEA
     Dosage: 1 DF, Q6H
     Route: 048
  10. METFORMIN HCL [Concomitant]
     Dosage: 1 DF, BID
     Route: 048
  11. NIACIN [Concomitant]
     Dosage: 1 UNK, UNK
     Route: 048

REACTIONS (6)
  - FATIGUE [None]
  - PALLOR [None]
  - ACTIVITIES OF DAILY LIVING IMPAIRED [None]
  - BLOOD PRESSURE DECREASED [None]
  - NEOPLASM MALIGNANT [None]
  - BODY TEMPERATURE INCREASED [None]
